FAERS Safety Report 9840980 (Version 1)
Quarter: 2014Q1

REPORT INFORMATION
  Report Type: Spontaneous
  Country: US (occurrence: None)
  Receive Date: 20140123
  Receipt Date: 20140123
  Transmission Date: 20141002
  Serious: Yes (Life-Threatening)
  Sender: FDA-Public Use
  Company Number: None

PATIENT
  Age: 44 Year
  Sex: Male
  Weight: 42 kg

DRUGS (13)
  1. CEFTRIAXONE [Suspect]
     Indication: BETA HAEMOLYTIC STREPTOCOCCAL INFECTION
     Route: 042
  2. ACETAMINOPPHEN [Concomitant]
  3. ALBUTEROL SULFATE NEBULIZATION SOLUTION [Concomitant]
  4. DOCUSAT ESODIUM (DOCUSATE SODIUM) CAPSULE [Concomitant]
  5. ESCITALOPRAM TABLET [Concomitant]
  6. FOLIC ACID TABLET [Concomitant]
  7. GABAPENTIN(GABAPENTIN)CAPSULE [Concomitant]
  8. IPRATROPIM 0.02% SOLUTION [Concomitant]
  9. LISINOPRIL TABLET [Concomitant]
  10. LORAZEPAM TABLET [Concomitant]
  11. MAG-AL(ALUMINUM + MAGNESIUM HYDROXIDE)LIQUID [Concomitant]
  12. METOPROLOL TARTRATE TABLET [Concomitant]
  13. MILK OF MILK OF MAGNESIA(MAGNESIUM HYDROXIDE) [Concomitant]

REACTIONS (1)
  - Agranulocytosis [None]
